FAERS Safety Report 22335974 (Version 2)
Quarter: 2024Q4

REPORT INFORMATION
  Report Type: Spontaneous
  Country: US (occurrence: US)
  Receive Date: 20230518
  Receipt Date: 20241107
  Transmission Date: 20250115
  Serious: No
  Sender: ROCHE
  Company Number: US-ROCHE-3155337

PATIENT
  Age: 73 Year
  Sex: Female

DRUGS (2)
  1. ACTEMRA ACTPEN [Suspect]
     Active Substance: TOCILIZUMAB
     Indication: Rheumatoid arthritis
     Dosage: STRENGTH:162MG/0.9ML? FREQUENCY TEXT:OTHER
     Route: 058
     Dates: start: 20200528
  2. ACTEMRA ACTPEN [Suspect]
     Active Substance: TOCILIZUMAB
     Indication: Rheumatoid arthritis
     Route: 058

REACTIONS (1)
  - Pain [Unknown]

NARRATIVE: CASE EVENT DATE: 20220804
